FAERS Safety Report 7909223 (Version 5)
Quarter: 2016Q3

REPORT INFORMATION
  Report Type: Spontaneous
  Country: US (occurrence: US)
  Receive Date: 20110421
  Receipt Date: 20160706
  Transmission Date: 20161109
  Serious: Yes (Hospitalization, Other)
  Sender: FDA-Public Use
  Company Number: US-ASTRAZENECA-2010SE56987

PATIENT
  Age: 70 Year
  Sex: Female
  Weight: 86.2 kg

DRUGS (2)
  1. TOPROL XL [Suspect]
     Active Substance: METOPROLOL SUCCINATE
     Route: 048
  2. CRESTOR [Suspect]
     Active Substance: ROSUVASTATIN CALCIUM
     Indication: BLOOD CHOLESTEROL ABNORMAL
     Route: 048
     Dates: start: 2011

REACTIONS (12)
  - Diabetes mellitus [Unknown]
  - Oropharyngeal pain [Unknown]
  - Visual impairment [Unknown]
  - Vascular stent thrombosis [Unknown]
  - Cardiac failure [Unknown]
  - Renal failure [Unknown]
  - Dysphonia [Unknown]
  - Renal disorder [Unknown]
  - Colon cancer [Unknown]
  - Stress [Unknown]
  - Post procedural haemorrhage [Unknown]
  - Cardiac disorder [Unknown]
